FAERS Safety Report 10434107 (Version 1)
Quarter: 2014Q3

REPORT INFORMATION
  Report Type: Report from Study
  Country: GB (occurrence: GB)
  Receive Date: 20140905
  Receipt Date: 20140905
  Transmission Date: 20150326
  Serious: Yes (Other)
  Sender: FDA-Public Use
  Company Number: GB-ASTRAZENECA-2014SE64603

PATIENT
  Age: 21596 Day
  Sex: Male
  Weight: 90.2 kg

DRUGS (4)
  1. VANDETANIB. [Suspect]
     Active Substance: VANDETANIB
     Indication: LUNG NEOPLASM MALIGNANT
     Route: 048
     Dates: start: 20140728
  2. AZD6244 [Suspect]
     Active Substance: SELUMETINIB
     Indication: LUNG NEOPLASM MALIGNANT
     Route: 048
     Dates: start: 20140811
  3. VANDETANIB. [Suspect]
     Active Substance: VANDETANIB
     Indication: LUNG NEOPLASM MALIGNANT
     Route: 048
     Dates: start: 20140818
  4. AZD6244 [Suspect]
     Active Substance: SELUMETINIB
     Indication: LUNG NEOPLASM MALIGNANT
     Route: 048
     Dates: start: 20140818

REACTIONS (1)
  - Retinopathy [Recovered/Resolved]

NARRATIVE: CASE EVENT DATE: 20140812
